FAERS Safety Report 9667466 (Version 1)
Quarter: 2013Q4

REPORT INFORMATION
  Report Type: Spontaneous
  Country: US (occurrence: US)
  Receive Date: 20131101
  Receipt Date: 20131101
  Transmission Date: 20140711
  Serious: Yes (Other)
  Sender: FDA-Public Use
  Company Number: US-SAVIENT-2012S1000074

PATIENT
  Age: 68 Year
  Sex: Female

DRUGS (16)
  1. KRYSTEXXA INJECTION [Suspect]
     Indication: GOUT
     Route: 042
     Dates: start: 20120713, end: 20120713
  2. DECADRON /00016002/ [Concomitant]
     Indication: PREMEDICATION
     Route: 048
     Dates: start: 20120712, end: 20120712
  3. DECADRON /00016002/ [Concomitant]
     Indication: PREMEDICATION
     Route: 042
     Dates: start: 20120713, end: 20120713
  4. BENADRYL /00000402/ [Concomitant]
     Indication: PREMEDICATION
     Route: 042
     Dates: start: 20120713, end: 20120713
  5. PEPCID /00706001/ [Concomitant]
     Indication: PREMEDICATION
     Route: 042
     Dates: start: 20120713, end: 20120713
  6. IMURAN /00001501/ [Concomitant]
     Indication: PRODUCT USED FOR UNKNOWN INDICATION
  7. LASIX /00032601/ [Concomitant]
     Indication: PRODUCT USED FOR UNKNOWN INDICATION
  8. VISTARIL /00058402/ [Concomitant]
     Indication: PRURITUS
  9. INDOCIN /00003801/ [Concomitant]
     Indication: GOUT
  10. TOPROL [Concomitant]
     Indication: PRODUCT USED FOR UNKNOWN INDICATION
  11. OXYCODONE [Concomitant]
     Indication: GOUT
  12. PREDNISONE [Concomitant]
     Indication: PRODUCT USED FOR UNKNOWN INDICATION
  13. COUMADIN /00014802/ [Concomitant]
     Indication: PRODUCT USED FOR UNKNOWN INDICATION
  14. AMBIEN [Concomitant]
     Indication: PRODUCT USED FOR UNKNOWN INDICATION
  15. PROGRAF [Concomitant]
     Indication: PRODUCT USED FOR UNKNOWN INDICATION
  16. IMITREX /01044801/ [Concomitant]
     Indication: MIGRAINE
     Route: 048

REACTIONS (1)
  - Infusion related reaction [Recovered/Resolved]
